FAERS Safety Report 17479481 (Version 1)
Quarter: 2020Q1

REPORT INFORMATION
  Report Type: Spontaneous
  Country: GB (occurrence: GB)
  Receive Date: 20200228
  Receipt Date: 20200228
  Transmission Date: 20200409
  Serious: Yes (Other)
  Sender: FDA-Public Use
  Company Number: GB-PFIZER INC-2020083582

PATIENT
  Age: 81 Year
  Sex: Female

DRUGS (4)
  1. RIBOCICLIB. [Suspect]
     Active Substance: RIBOCICLIB
     Dosage: UNK
     Dates: start: 201910, end: 201912
  2. PACLITAXEL. [Suspect]
     Active Substance: PACLITAXEL
     Dosage: 1 DF, WEEKLY
     Dates: start: 201912
  3. LETROZOLE. [Suspect]
     Active Substance: LETROZOLE
     Dosage: 2.5 MG, 1X/DAY
     Dates: start: 201404, end: 201909
  4. DENOSUMAB [Suspect]
     Active Substance: DENOSUMAB
     Dosage: UNK

REACTIONS (8)
  - Metastases to lung [Unknown]
  - Pleural effusion [Unknown]
  - Lymphoma [Unknown]
  - Second primary malignancy [Unknown]
  - Carbohydrate antigen 15-3 increased [Unknown]
  - Breast cancer female [Unknown]
  - Metastases to liver [Unknown]
  - Liver function test increased [Unknown]
